FAERS Safety Report 7424362-6 (Version None)
Quarter: 2011Q2

REPORT INFORMATION
  Report Type: 
  Country: None (occurrence: None)
  Receive Date: 20110419
  Receipt Date: 20090810
  Transmission Date: 20111010
  Serious: Yes (Hospitalization, Other)
  Sender: FDA-Public Use
  Company Number: DE-GENENTECH-316847

PATIENT
  Age: 85 Year
  Sex: Female

DRUGS (1)
  1. LUCENTIS [Suspect]
     Indication: MACULAR DEGENERATION
     Dosage: UNK
     Route: 031
     Dates: start: 20090601

REACTIONS (7)
  - DEPRESSION [None]
  - MALAISE [None]
  - MUSCULOSKELETAL CHEST PAIN [None]
  - EAR DISCOMFORT [None]
  - VISUAL ACUITY REDUCED [None]
  - GASTRIC ULCER [None]
  - NECK PAIN [None]
